FAERS Safety Report 20890369 (Version 2)
Quarter: 2022Q2

REPORT INFORMATION
  Report Type: Spontaneous
  Country: IT (occurrence: IT)
  Receive Date: 20220530
  Receipt Date: 20220621
  Transmission Date: 20220721
  Serious: Yes (Hospitalization)
  Sender: FDA-Public Use
  Company Number: None

PATIENT
  Age: 64 Year
  Sex: Female
  Weight: 70 kg

DRUGS (1)
  1. REMICADE [Suspect]
     Active Substance: INFLIXIMAB
     Indication: Crohn^s disease
     Dosage: ; CYCLICAL
     Route: 041
     Dates: start: 20220228, end: 20220314

REACTIONS (1)
  - Intestinal perforation [Recovered/Resolved with Sequelae]

NARRATIVE: CASE EVENT DATE: 20220426
